FAERS Safety Report 15374441 (Version 2)
Quarter: 2023Q1

REPORT INFORMATION
  Report Type: Spontaneous
  Country: JP (occurrence: JP)
  Receive Date: 20180912
  Receipt Date: 20230110
  Transmission Date: 20230418
  Serious: Yes (Other)
  Sender: FDA-Public Use
  Company Number: PHJP2018JP016140

PATIENT
  Age: 6 Year
  Sex: Male

DRUGS (8)
  1. IMATINIB [Suspect]
     Active Substance: IMATINIB
     Indication: Philadelphia positive acute lymphocytic leukaemia
     Dosage: 350 MG/M2, QD
     Route: 048
  2. IMATINIB [Suspect]
     Active Substance: IMATINIB
     Dosage: 135 MG/M2, QD
     Route: 048
  3. IMATINIB [Suspect]
     Active Substance: IMATINIB
     Dosage: 175 MG/M2, UNK
     Route: 065
  4. IMATINIB [Suspect]
     Active Substance: IMATINIB
     Dosage: 340 MG/M2, QD
     Route: 048
  5. IMATINIB [Suspect]
     Active Substance: IMATINIB
     Dosage: 350 MG/M2, QD
     Route: 048
  6. CYCLOPHOSPHAMIDE [Concomitant]
     Active Substance: CYCLOPHOSPHAMIDE
     Indication: Philadelphia positive acute lymphocytic leukaemia
     Dosage: UNK
     Route: 065
  7. CYTARABINE [Concomitant]
     Active Substance: CYTARABINE
     Indication: Philadelphia positive acute lymphocytic leukaemia
     Dosage: UNK
     Route: 065
  8. MERCAPTOPURINE [Concomitant]
     Active Substance: MERCAPTOPURINE
     Indication: Philadelphia positive acute lymphocytic leukaemia
     Dosage: UNK
     Route: 065

REACTIONS (6)
  - Gelatinous transformation of the bone marrow [Recovering/Resolving]
  - Osteonecrosis [Unknown]
  - Bone marrow necrosis [Unknown]
  - Fibrin D dimer increased [Recovering/Resolving]
  - C-reactive protein increased [Unknown]
  - Pain in extremity [Recovering/Resolving]
